FAERS Safety Report 6419296-X (Version None)
Quarter: 2009Q4

REPORT INFORMATION
  Report Type: 
  Country: None (occurrence: None)
  Receive Date: 20091029
  Receipt Date: 20091020
  Transmission Date: 20100525
  Serious: Yes (Hospitalization)
  Sender: FDA-Public Use
  Company Number: PT-BRISTOL-MYERS SQUIBB COMPANY-14830384

PATIENT
  Age: 34 Year
  Sex: Male

DRUGS (2)
  1. EFAVIRENZ [Suspect]
     Dates: start: 20030201, end: 20051101
  2. TENOFOVIR [Concomitant]
     Dates: start: 20011001

REACTIONS (2)
  - CORONARY ARTERY DISEASE [None]
  - MYOCARDIAL INFARCTION [None]
